FAERS Safety Report 4439541-X (Version None)
Quarter: 2004Q3

REPORT INFORMATION
  Report Type: 
  Country: None (occurrence: None)
  Receive Date: 20040901
  Receipt Date: 20040901
  Transmission Date: 20050211
  Serious: Yes (Hospitalization)
  Sender: FDA-Public Use
  Company Number: None

PATIENT
  Sex: Female

DRUGS (6)
  1. PRINIVIL [Suspect]
     Indication: HYPERTENSION
     Dosage: PO [PRIOR TO ADMISSION]
     Route: 048
  2. ASPIRIN [Concomitant]
  3. TAMOXIFEN CITRATE [Concomitant]
  4. LOVASTATIN [Concomitant]
  5. GLYBURIDE [Concomitant]
  6. LUMIGAN [Concomitant]

REACTIONS (3)
  - ANGIONEUROTIC OEDEMA [None]
  - SWELLING FACE [None]
  - SWOLLEN TONGUE [None]
